FAERS Safety Report 5118239-9 (Version None)
Quarter: 2006Q4

REPORT INFORMATION
  Report Type: 
  Country: None (occurrence: None)
  Receive Date: 20061002
  Receipt Date: 20060629
  Transmission Date: 20070319
  Serious: No
  Sender: FDA-Public Use
  Company Number: US-BRISTOL-MYERS SQUIBB COMPANY-13429253

PATIENT
  Sex: Female

DRUGS (7)
  1. ORENCIA [Suspect]
     Indication: RHEUMATOID ARTHRITIS
     Route: 042
     Dates: start: 20060628
  2. METHOTREXATE [Concomitant]
  3. QUININE SULFATE [Concomitant]
  4. AMITRIPTYLINE HCL [Concomitant]
  5. FOLIC ACID [Concomitant]
  6. LODINE XL [Concomitant]
  7. SOMA [Concomitant]

REACTIONS (1)
  - VITREOUS FLOATERS [None]
